FAERS Safety Report 8026262-X (Version None)
Quarter: 2012Q1

REPORT INFORMATION
  Report Type: 
  Country: None (occurrence: None)
  Receive Date: 20120105
  Receipt Date: 20111129
  Transmission Date: 20120608
  Serious: No
  Sender: FDA-Public Use
  Company Number: US-ABBOTT-11P-163-0878924-00

PATIENT
  Sex: Female
  Weight: 88.984 kg

DRUGS (3)
  1. SYNTHROID [Suspect]
     Indication: HYPOTHYROIDISM
     Dosage: DISCONTINUED NEW BOTTLE AFTER 2 DOSES
     Route: 048
     Dates: start: 19941201, end: 20111101
  2. SYNTHROID [Suspect]
     Indication: THYROID CANCER
     Dosage: DISCONTINUED NEW BOTTLE, WHICH WAS PICKED UP ON 11/14/2011, AFTER 2 DOSES.
     Route: 048
     Dates: start: 20111101
  3. PRILOSEC [Concomitant]
     Indication: PRODUCT USED FOR UNKNOWN INDICATION

REACTIONS (7)
  - DRY THROAT [None]
  - TONGUE DRY [None]
  - THROAT IRRITATION [None]
  - PRODUCT QUALITY ISSUE [None]
  - ORAL DISCOMFORT [None]
  - CATARACT [None]
  - TABLET PHYSICAL ISSUE [None]
